FAERS Safety Report 8968425 (Version 1)
Quarter: 2012Q4

REPORT INFORMATION
  Report Type: 
  Country: US (occurrence: US)
  Receive Date: 20121217
  Receipt Date: 20121217
  Transmission Date: 20130627
  Serious: No
  Sender: FDA-Public Use
  Company Number: US-VERTEX PHARMACEUTICALS INC.-2012-025905

PATIENT
  Age: 58 Year
  Sex: Female
  Weight: 102.95 kg

DRUGS (4)
  1. VX-950 (TELAPREVIR) [Suspect]
     Indication: HEPATITIS C
     Dosage: 750 mg, tid
     Route: 048
  2. PEGASYS [Concomitant]
     Indication: HEPATITIS C
     Dosage: 180 ?g, UNK
  3. RIBAVIRIN [Concomitant]
     Indication: HEPATITIS C
     Dosage: 200 mg, qd
  4. TYLENOL /00020001/ [Concomitant]
     Dosage: 325 mg, qd

REACTIONS (3)
  - Dyspnoea [Unknown]
  - Rash pruritic [Unknown]
  - Nausea [Unknown]
